FAERS Safety Report 19303499 (Version 1)
Quarter: 2021Q2

REPORT INFORMATION
  Report Type: Other
  Country: US (occurrence: US)
  Receive Date: 20210525
  Receipt Date: 20210525
  Transmission Date: 20210717
  Serious: No
  Sender: FDA-Public Use
  Company Number: US-ROCHE-2835548

PATIENT
  Sex: Female

DRUGS (1)
  1. OCREVUS [Suspect]
     Active Substance: OCRELIZUMAB
     Indication: RELAPSING MULTIPLE SCLEROSIS
     Dosage: DATES OF TREATMENT: 13/SEP/2018, 27/SEP/2018, 07/MAR/2019, 06/SEP/2019, 24/FEB/2020, 10/AUG/2020, 09
     Route: 042
     Dates: start: 20170927

REACTIONS (1)
  - COVID-19 [Recovered/Resolved]
